FAERS Safety Report 9912538 (Version 1)
Quarter: 2014Q1

REPORT INFORMATION
  Report Type: Spontaneous
  Country: US (occurrence: None)
  Receive Date: 20140218
  Receipt Date: 20140218
  Transmission Date: 20141002
  Serious: No
  Sender: FDA-Public Use
  Company Number: None

PATIENT
  Age: 62 Year
  Sex: Male
  Weight: 105 kg

DRUGS (2)
  1. CASODEX [Suspect]
     Dates: start: 20131114
  2. ZOLADEX [Suspect]
     Dates: start: 20131124

REACTIONS (2)
  - Pyrexia [None]
  - Device occlusion [None]
